FAERS Safety Report 7215198-X (Version None)
Quarter: 2011Q1

REPORT INFORMATION
  Report Type: 
  Country: None (occurrence: None)
  Receive Date: 20110107
  Receipt Date: 20101020
  Transmission Date: 20110831
  Serious: No
  Sender: FDA-Public Use
  Company Number: A0887854A

PATIENT
  Sex: Female

DRUGS (2)
  1. LOVAZA [Suspect]
  2. NO CONCURRENT MEDICATION [Concomitant]

REACTIONS (3)
  - PRODUCT QUALITY ISSUE [None]
  - RASH [None]
  - DYSGEUSIA [None]
